FAERS Safety Report 6525956-2 (Version None)
Quarter: 2010Q1

REPORT INFORMATION
  Report Type: 
  Country: None (occurrence: None)
  Receive Date: 20100104
  Receipt Date: 20091223
  Transmission Date: 20100710
  Serious: Yes (Hospitalization)
  Sender: FDA-Public Use
  Company Number: PHEH2009US08527

PATIENT
  Sex: Female

DRUGS (1)
  1. EXJADE [Suspect]
     Dosage: 1750 MG DAILY
     Route: 048
     Dates: start: 20090630, end: 20090827

REACTIONS (2)
  - SICKLE CELL ANAEMIA WITH CRISIS [None]
  - URINE COLOUR ABNORMAL [None]
